FAERS Safety Report 10750904 (Version 3)
Quarter: 2015Q1

REPORT INFORMATION
  Report Type: Spontaneous
  Country: US (occurrence: US)
  Receive Date: 20150130
  Receipt Date: 20150304
  Transmission Date: 20150721
  Serious: Yes (Death, Hospitalization)
  Sender: FDA-Public Use
  Company Number: US-UNITED THERAPEUTICS-UNT-2015-000360

PATIENT
  Age: 74 Year
  Sex: Male
  Weight: 69.84 kg

DRUGS (2)
  1. REMODULIN [Suspect]
     Active Substance: TREPROSTINIL
     Indication: PULMONARY ARTERIAL HYPERTENSION
     Dosage: 0.071 ?G/KG, CONTINUING
     Route: 058
     Dates: start: 20131031
  2. ADEMPAS [Concomitant]
     Active Substance: RIOCIGUAT
     Indication: PRODUCT USED FOR UNKNOWN INDICATION

REACTIONS (4)
  - Respiratory failure [Fatal]
  - Pulmonary arterial hypertension [Fatal]
  - Fluid overload [Not Recovered/Not Resolved]
  - Right ventricular failure [Fatal]

NARRATIVE: CASE EVENT DATE: 20141225
